FAERS Safety Report 7272461-4 (Version None)
Quarter: 2011Q1

REPORT INFORMATION
  Report Type: 
  Country: None (occurrence: None)
  Receive Date: 20110203
  Receipt Date: 20110126
  Transmission Date: 20110831
  Serious: Yes (Hospitalization, Other)
  Sender: FDA-Public Use
  Company Number: US-ROCHE-703110

PATIENT
  Sex: Male

DRUGS (4)
  1. RIBAVIRIN [Suspect]
     Indication: HEPATITIS C
     Dosage: PATIENT IN WEEK 47
     Route: 065
     Dates: start: 20100217, end: 20110112
  2. PEGINTERFERON ALFA-2A [Suspect]
     Indication: HEPATITIS C
     Dosage: PRE FILLED SYRINGE; PATIENT IN WEEK 47
     Route: 065
     Dates: start: 20100217, end: 20110112
  3. GABAPENTIN [Concomitant]
  4. CITALOPRAM HYDROBROMIDE [Concomitant]

REACTIONS (33)
  - GASTROOESOPHAGEAL REFLUX DISEASE [None]
  - VISION BLURRED [None]
  - ANGER [None]
  - URTICARIA [None]
  - EATING DISORDER [None]
  - GASTROINTESTINAL DISORDER [None]
  - DIVERTICULITIS [None]
  - HERNIA [None]
  - HAEMORRHAGE [None]
  - GASTROENTERITIS [None]
  - BURNING SENSATION [None]
  - DRUG DEPENDENCE [None]
  - MENTAL DISORDER [None]
  - INSOMNIA [None]
  - GLOSSODYNIA [None]
  - DIZZINESS [None]
  - NAUSEA [None]
  - PROCTALGIA [None]
  - HEPATIC LESION [None]
  - APPENDICITIS PERFORATED [None]
  - INTESTINAL MASS [None]
  - CHOLECYSTITIS INFECTIVE [None]
  - DRUG SCREEN POSITIVE [None]
  - DYSPHONIA [None]
  - URINARY TRACT INFECTION [None]
  - HEPATIC MASS [None]
  - GANGRENE [None]
  - HAEMORRHOIDS [None]
  - VOMITING [None]
  - EPISTAXIS [None]
  - FOREIGN BODY [None]
  - DEPRESSION [None]
  - ASTHENIA [None]
